FAERS Safety Report 7572399-9 (Version None)
Quarter: 2011Q2

REPORT INFORMATION
  Report Type: 
  Country: None (occurrence: None)
  Receive Date: 20110624
  Receipt Date: 20110621
  Transmission Date: 20111010
  Serious: Yes (Life-Threatening, Hospitalization, Other)
  Sender: FDA-Public Use
  Company Number: PHEH2010US02758

PATIENT
  Sex: Female
  Weight: 72.562 kg

DRUGS (9)
  1. LISINOPRIL [Concomitant]
     Dosage: UNK UKN, UNK
  2. LOPERYL [Concomitant]
     Dosage: UNK UKN, UNK
  3. PREDNISONE [Concomitant]
     Dosage: 10 MG/DAY
  4. OMEPRAZOLE [Concomitant]
  5. RECLAST [Suspect]
     Indication: OSTEOPOROSIS POSTMENOPAUSAL
     Dosage: 5 MG YEARLY
     Route: 042
     Dates: start: 20100210
  6. PROTON PUMP INHIBITORS [Concomitant]
  7. SIMVASTATIN [Concomitant]
     Dosage: UNK UKN, UNK
  8. ANTIHYPERTENSIVES [Concomitant]
  9. METOPROLOL TARTRATE [Concomitant]
     Indication: BLOOD PRESSURE
     Dosage: UNK UKN, UNK

REACTIONS (16)
  - BLOOD POTASSIUM INCREASED [None]
  - CREATININE RENAL CLEARANCE INCREASED [None]
  - HAEMOGLOBIN DECREASED [None]
  - MYOCARDIAL INFARCTION [None]
  - MALAISE [None]
  - DRUG HYPERSENSITIVITY [None]
  - RENAL CYST [None]
  - FEELING ABNORMAL [None]
  - FACE OEDEMA [None]
  - BLOOD UREA INCREASED [None]
  - BLOOD ALBUMIN DECREASED [None]
  - LETHARGY [None]
  - DECREASED APPETITE [None]
  - RENAL FAILURE ACUTE [None]
  - URINE OUTPUT DECREASED [None]
  - FATIGUE [None]
